FAERS Safety Report 9001539 (Version 1)
Quarter: 2013Q1

REPORT INFORMATION
  Report Type: Spontaneous
  Country: US (occurrence: US)
  Receive Date: 20130107
  Receipt Date: 20130107
  Transmission Date: 20140127
  Serious: Yes (Hospitalization)
  Sender: FDA-Public Use
  Company Number: US-BAYER-2013-001496

PATIENT
  Age: 24 Year
  Sex: Female

DRUGS (5)
  1. YAZ [Suspect]
  2. HYDROCODONE W/APAP [Concomitant]
     Dosage: UNK
     Dates: start: 20080119
  3. PERCOCET [Concomitant]
     Indication: PAIN
     Dosage: 7.5 MG, EVERY 6 HOURS PRN
     Route: 048
  4. PHENERGAN [Concomitant]
     Indication: PAIN
  5. MORPHINE [Concomitant]
     Indication: PAIN

REACTIONS (1)
  - Pulmonary embolism [None]
